FAERS Safety Report 10570267 (Version 2)
Quarter: 2014Q4

REPORT INFORMATION
  Report Type: Spontaneous
  Country: CH (occurrence: CH)
  Receive Date: 20141107
  Receipt Date: 20141107
  Transmission Date: 20150529
  Serious: Yes (Hospitalization, Other)
  Sender: FDA-Public Use
  Company Number: CH-ABBVIE-14K-151-1283312-00

PATIENT
  Age: 68 Year
  Sex: Male
  Weight: 78 kg

DRUGS (4)
  1. HUMIRA [Suspect]
     Active Substance: ADALIMUMAB
     Route: 058
     Dates: start: 20140922
  2. ASPIRIN. [Suspect]
     Active Substance: ASPIRIN
     Indication: PRODUCT USED FOR UNKNOWN INDICATION
     Route: 065
     Dates: start: 20140901
  3. SIMCORA [Concomitant]
     Active Substance: SIMVASTATIN
     Indication: HYPERCHOLESTEROLAEMIA
  4. HUMIRA [Suspect]
     Active Substance: ADALIMUMAB
     Indication: PSORIASIS
     Route: 058
     Dates: start: 200811, end: 20140831

REACTIONS (11)
  - Balance disorder [Recovered/Resolved]
  - Diarrhoea [Unknown]
  - Renal failure [Recovered/Resolved]
  - Pneumonia legionella [Recovered/Resolved with Sequelae]
  - Lipase increased [Unknown]
  - Haematocrit decreased [Unknown]
  - Red blood cell count decreased [Unknown]
  - Rhinitis [Unknown]
  - C-reactive protein increased [Unknown]
  - Immunosuppression [Unknown]
  - Activated partial thromboplastin time prolonged [Unknown]

NARRATIVE: CASE EVENT DATE: 20100525
